FAERS Safety Report 6379127-3 (Version None)
Quarter: 2009Q3

REPORT INFORMATION
  Report Type: 
  Country: None (occurrence: None)
  Receive Date: 20090928
  Receipt Date: 20090923
  Transmission Date: 20100115
  Serious: Yes (Hospitalization)
  Sender: FDA-Public Use
  Company Number: US-B.I. PHARMACEUTICALS,INC./RIDGEFIELD-2009-BP-11219BP

PATIENT
  Sex: Male

DRUGS (4)
  1. SPIRIVA [Suspect]
     Indication: CHRONIC OBSTRUCTIVE PULMONARY DISEASE
     Dosage: 18 MCG
     Route: 055
     Dates: start: 20080701
  2. CARDIVIL [Concomitant]
     Indication: HYPERTENSION
     Dates: start: 20080701
  3. COUMADIN [Concomitant]
     Indication: ATRIAL FIBRILLATION
     Dates: start: 20090301
  4. RAMIPRIL [Concomitant]
     Indication: HYPERTENSION
     Dates: start: 20080701

REACTIONS (1)
  - ATRIAL FIBRILLATION [None]
